FAERS Safety Report 5164633-X (Version None)
Quarter: 2006Q4

REPORT INFORMATION
  Report Type: 
  Country: None (occurrence: None)
  Receive Date: 20061205
  Receipt Date: 20061016
  Transmission Date: 20070319
  Serious: Yes (Other)
  Sender: FDA-Public Use
  Company Number: FR-AVENTIS-200613701FR

PATIENT

DRUGS (3)
  1. KETEK [Suspect]
     Indication: TONSILLITIS
     Route: 048
     Dates: start: 20060414
  2. DOLIPRANE [Suspect]
     Route: 048
     Dates: start: 20060414
  3. ADVIL [Concomitant]
     Route: 048
     Dates: start: 20060414

REACTIONS (1)
  - CYTOLYTIC HEPATITIS [None]
